FAERS Safety Report 10880618 (Version 1)
Quarter: 2015Q1

REPORT INFORMATION
  Report Type: Spontaneous
  Country: JP (occurrence: JP)
  Receive Date: 20150303
  Receipt Date: 20150303
  Transmission Date: 20150721
  Serious: Yes (Death, Other)
  Sender: FDA-Public Use
  Company Number: JP-ALKEM-000890

PATIENT
  Age: 19 Year
  Sex: Female
  Weight: 50 kg

DRUGS (3)
  1. ZONISAMIDE. [Suspect]
     Active Substance: ZONISAMIDE
     Indication: EPILEPSY
  2. LOXOPROFEN [Suspect]
     Active Substance: LOXOPROFEN
     Indication: PRODUCT USED FOR UNKNOWN INDICATION
  3. LAMOTRIGINE. [Suspect]
     Active Substance: LAMOTRIGINE
     Indication: EPILEPSY

REACTIONS (3)
  - Treatment noncompliance [Unknown]
  - Sudden unexplained death in epilepsy [Fatal]
  - Epilepsy [Recovered/Resolved]
